FAERS Safety Report 7301861-9 (Version None)
Quarter: 2011Q1

REPORT INFORMATION
  Report Type: 
  Country: None (occurrence: None)
  Receive Date: 20110218
  Receipt Date: 20110210
  Transmission Date: 20110831
  Serious: Yes (Other)
  Sender: FDA-Public Use
  Company Number: US-ROCHE-736934

PATIENT
  Sex: Male
  Weight: 90.7 kg

DRUGS (2)
  1. ACCUTANE [Suspect]
     Indication: ACNE
     Route: 065
     Dates: start: 19831001, end: 19831201
  2. ACCUTANE [Suspect]
     Route: 065
     Dates: start: 19840130, end: 19840601

REACTIONS (3)
  - CROHN'S DISEASE [None]
  - COLONIC POLYP [None]
  - GASTROINTESTINAL INJURY [None]
